FAERS Safety Report 6877609-9 (Version None)
Quarter: 2010Q3

REPORT INFORMATION
  Report Type: 
  Country: None (occurrence: None)
  Receive Date: 20100727
  Receipt Date: 20100319
  Transmission Date: 20110219
  Serious: No
  Sender: FDA-Public Use
  Company Number: US-ABBOTT-10P-163-0634458-00

PATIENT
  Sex: Female
  Weight: 60.836 kg

DRUGS (4)
  1. SYNTHROID [Suspect]
     Indication: THYROIDECTOMY
     Dates: start: 20100101, end: 20100122
  2. SYNTHROID [Suspect]
     Dates: start: 20100122
  3. ESTRADIOL [Concomitant]
     Indication: HORMONE THERAPY
  4. IRON [Concomitant]
     Indication: PRODUCT USED FOR UNKNOWN INDICATION
     Dosage: SUPPLEMENT

REACTIONS (4)
  - ARRHYTHMIA [None]
  - ASTHENIA [None]
  - DRY SKIN [None]
  - FATIGUE [None]
